FAERS Safety Report 11672915 (Version 1)
Quarter: 2015Q4

REPORT INFORMATION
  Report Type: Spontaneous
  Country: US (occurrence: None)
  Receive Date: 20151026
  Receipt Date: 20151026
  Transmission Date: 20160304
  Serious: Yes (Hospitalization)
  Sender: FDA-Public Use
  Company Number: None

PATIENT
  Age: 16 Year
  Sex: Female
  Weight: 101.2 kg

DRUGS (4)
  1. MERCAPTOPURINE. [Suspect]
     Active Substance: MERCAPTOPURINE
     Dates: end: 20151022
  2. CYTARABINE. [Suspect]
     Active Substance: CYTARABINE
     Dates: end: 20151020
  3. CYCLOPHOSPHARMIDE (CYCLOPHOSPHAMIDE) (CYCLOPHOSPHAMIDE) [Concomitant]
     Active Substance: CYCLOPHOSPHAMIDE
     Dates: end: 20151017
  4. METHOTREXATE [Suspect]
     Active Substance: METHOTREXATE
     Dates: end: 20151016

REACTIONS (5)
  - Pericardial effusion [None]
  - Hypotension [None]
  - Hyperhidrosis [None]
  - Pleural effusion [None]
  - Chest pain [None]

NARRATIVE: CASE EVENT DATE: 20151022
